FAERS Safety Report 9294851 (Version 2)
Quarter: 2013Q3

REPORT INFORMATION
  Report Type: Spontaneous
  Country: AT (occurrence: AT)
  Receive Date: 20130517
  Receipt Date: 20130718
  Transmission Date: 20140515
  Serious: Yes (Other)
  Sender: FDA-Public Use
  Company Number: AT-ROCHE-1225679

PATIENT
  Sex: Female
  Weight: 100 kg

DRUGS (9)
  1. XOLAIR [Suspect]
     Indication: PRODUCT USED FOR UNKNOWN INDICATION
     Route: 065
  2. XOLAIR [Suspect]
     Indication: ASTHMA
     Route: 058
     Dates: start: 20110811
  3. XOLAIR [Suspect]
     Route: 065
  4. XOLAIR [Suspect]
     Route: 065
  5. SERETIDE DISKUS [Concomitant]
  6. ALVESCO [Concomitant]
     Route: 065
  7. BERODUAL [Concomitant]
  8. EUTHYROX [Concomitant]
     Route: 065
  9. PANTOLOC [Concomitant]
     Route: 065

REACTIONS (3)
  - Chest pain [Recovered/Resolved]
  - Abdominal pain upper [Recovered/Resolved]
  - Asthma [Unknown]
